FAERS Safety Report 13913822 (Version 1)
Quarter: 2017Q3

REPORT INFORMATION
  Report Type: Spontaneous
  Country: US (occurrence: US)
  Receive Date: 20170828
  Receipt Date: 20170828
  Transmission Date: 20171127
  Serious: No
  Sender: FDA-Public Use
  Company Number: US-ROCHE-1139932

PATIENT
  Sex: Male
  Weight: 15.5 kg

DRUGS (1)
  1. NUTROPIN AQ [Suspect]
     Active Substance: SOMATROPIN
     Indication: GROWTH HORMONE DEFICIENCY
     Dosage: 0.13ML PER INJECTION
     Route: 058

REACTIONS (2)
  - Tooth abscess [Unknown]
  - Sinusitis [Unknown]
